FAERS Safety Report 8333001-1 (Version None)
Quarter: 2012Q2

REPORT INFORMATION
  Report Type: 
  Country: None (occurrence: None)
  Receive Date: 20120503
  Receipt Date: 20120425
  Transmission Date: 20120825
  Serious: Yes (Other)
  Sender: FDA-Public Use
  Company Number: PHHY2012BR036170

PATIENT
  Age: 84 Year
  Sex: Male

DRUGS (2)
  1. DIOVAN [Suspect]
     Dosage: 25 MG
  2. FORMOTEROL FUMARATE [Suspect]
     Dosage: 12/400 MICRO GRAM

REACTIONS (5)
  - CARDIAC FAILURE [None]
  - LUNG DISORDER [None]
  - CHRONIC OBSTRUCTIVE PULMONARY DISEASE [None]
  - NEOPLASM MALIGNANT [None]
  - HYPERTENSION [None]
